FAERS Safety Report 4889353-8 (Version None)
Quarter: 2006Q1

REPORT INFORMATION
  Report Type: 
  Country: None (occurrence: None)
  Receive Date: 20060120
  Receipt Date: 20060120
  Transmission Date: 20060701
  Serious: Yes (Disabling)
  Sender: FDA-Public Use
  Company Number: None

PATIENT
  Sex: Male
  Weight: 63.5036 kg

DRUGS (4)
  1. LINEZOLID 600MG PHARMACIA [Suspect]
     Indication: ENTEROCOCCAL INFECTION
     Dosage: 600MG Q12 HOUR PO
     Route: 048
     Dates: start: 20050623, end: 20050712
  2. LINEZOLID 600MG PHARMACIA [Suspect]
     Indication: OSTEOMYELITIS
     Dosage: 600MG Q12 HOUR PO
     Route: 048
     Dates: start: 20050623, end: 20050712
  3. LINEZOLID 600MG PHARMACIA [Suspect]
     Indication: STAPHYLOCOCCAL INFECTION
     Dosage: 600MG Q12 HOUR PO
     Route: 048
     Dates: start: 20050623, end: 20050712
  4. LINEZOLID [Concomitant]

REACTIONS (5)
  - CONVULSION [None]
  - HYPOXIA [None]
  - PANCYTOPENIA [None]
  - PROCEDURAL COMPLICATION [None]
  - RESPIRATORY ARREST [None]
